FAERS Safety Report 13983165 (Version 1)
Quarter: 2017Q3

REPORT INFORMATION
  Report Type: Spontaneous
  Country: FR (occurrence: FR)
  Receive Date: 20170918
  Receipt Date: 20170918
  Transmission Date: 20171128
  Serious: Yes (Death, Other)
  Sender: FDA-Public Use
  Company Number: FR-JNJFOC-20160700139

PATIENT

DRUGS (1)
  1. METHYLPHENIDATE HYDROCHLORIDE. [Suspect]
     Active Substance: METHYLPHENIDATE HYDROCHLORIDE
     Indication: PRODUCT USED FOR UNKNOWN INDICATION
     Route: 065

REACTIONS (6)
  - Ventricular arrhythmia [Unknown]
  - Atrial fibrillation [Unknown]
  - Ventricular extrasystoles [Unknown]
  - Death [Fatal]
  - Tachycardia [Unknown]
  - Arrhythmia [Unknown]
